FAERS Safety Report 19719137 (Version 2)
Quarter: 2021Q3

REPORT INFORMATION
  Report Type: Report from Study
  Country: AE (occurrence: AE)
  Receive Date: 20210818
  Receipt Date: 20210820
  Transmission Date: 20211014
  Serious: Yes (Hospitalization, Other)
  Sender: FDA-Public Use
  Company Number: AE-B.I. PHARMACEUTICALS,INC./RIDGEFIELD-2021-BI-121657

PATIENT

DRUGS (4)
  1. MYCOPHENOLATE [Concomitant]
     Active Substance: MYCOPHENOLIC ACID
     Indication: PRODUCT USED FOR UNKNOWN INDICATION
     Dosage: (AVERAGE DOSE, 750 MG TWICE DAILY)
     Route: 065
  2. TRAJENTA [Suspect]
     Active Substance: LINAGLIPTIN
     Indication: TYPE 2 DIABETES MELLITUS
     Route: 065
  3. PREDNISOLONE. [Concomitant]
     Active Substance: PREDNISOLONE
     Indication: PRODUCT USED FOR UNKNOWN INDICATION
     Dosage: LOW?DOSE PREDNISOLONE (2.5? 5 MG DAILY)
     Route: 065
  4. TACROLIMUS. [Concomitant]
     Active Substance: TACROLIMUS
     Indication: PRODUCT USED FOR UNKNOWN INDICATION
     Dosage: (TARGET TROUGH LEVEL, 5?7 NG/DL)

REACTIONS (1)
  - Acute myocardial infarction [Unknown]
